FAERS Safety Report 12793828 (Version 1)
Quarter: 2016Q3

REPORT INFORMATION
  Report Type: Spontaneous
  Country: US (occurrence: US)
  Receive Date: 20160929
  Receipt Date: 20160929
  Transmission Date: 20161109
  Serious: No
  Sender: FDA-Public Use
  Company Number: US-JAZZ-2016-US-011834

PATIENT
  Sex: Male

DRUGS (31)
  1. XYREM [Suspect]
     Active Substance: SODIUM OXYBATE
     Dosage: 4.5 G, TID
     Route: 048
     Dates: start: 201403
  2. PREVIDENT [Concomitant]
     Active Substance: SODIUM FLUORIDE
  3. CELEXA [Concomitant]
     Active Substance: CITALOPRAM HYDROBROMIDE
  4. TRAZODONE HYDROCHLORIDE. [Concomitant]
     Active Substance: TRAZODONE HYDROCHLORIDE
  5. XYREM [Suspect]
     Active Substance: SODIUM OXYBATE
     Indication: INSOMNIA
     Dosage: 2.5 G, BID
     Route: 048
     Dates: start: 201002, end: 201002
  6. ANDROGEL [Concomitant]
     Active Substance: TESTOSTERONE
  7. ATENOLOL. [Concomitant]
     Active Substance: ATENOLOL
  8. DOXYCYCLINE HYCLATE. [Concomitant]
     Active Substance: DOXYCYCLINE HYCLATE
  9. FLEXERIL [Concomitant]
     Active Substance: CYCLOBENZAPRINE HYDROCHLORIDE
  10. TRICOR [Concomitant]
     Active Substance: FENOFIBRATE
  11. CIALIS [Concomitant]
     Active Substance: TADALAFIL
  12. HALCION [Concomitant]
     Active Substance: TRIAZOLAM
  13. TRIAZOLAM. [Concomitant]
     Active Substance: TRIAZOLAM
  14. DEXILANT [Concomitant]
     Active Substance: DEXLANSOPRAZOLE
  15. XYREM [Suspect]
     Active Substance: SODIUM OXYBATE
     Dosage: DOSE ADJUSTMENTS
     Route: 048
     Dates: start: 201002, end: 201403
  16. BACLOFEN. [Concomitant]
     Active Substance: BACLOFEN
  17. LIDOCAINE AND PRILOCAINE [Concomitant]
     Active Substance: LIDOCAINE\PRILOCAINE
  18. ESCITALOPRAM [Concomitant]
     Active Substance: ESCITALOPRAM OXALATE
  19. MORPHINE SULF [Concomitant]
     Active Substance: MORPHINE SULFATE
  20. EVZIO [Concomitant]
     Active Substance: NALOXONE HYDROCHLORIDE
  21. DEPLIN [Concomitant]
     Active Substance: LEVOMEFOLATE CALCIUM
  22. MS CONTIN [Concomitant]
     Active Substance: MORPHINE SULFATE
  23. LISINOPRIL. [Concomitant]
     Active Substance: LISINOPRIL
  24. MUPIROCIN. [Concomitant]
     Active Substance: MUPIROCIN
  25. NORCO [Concomitant]
     Active Substance: ACETAMINOPHEN\HYDROCODONE BITARTRATE
  26. LORAZEPAM. [Concomitant]
     Active Substance: LORAZEPAM
  27. MARIJUANA [Concomitant]
     Active Substance: CANNABIS SATIVA SUBSP. INDICA TOP
  28. SIMVASTATIN. [Concomitant]
     Active Substance: SIMVASTATIN
  29. AMITIZA [Concomitant]
     Active Substance: LUBIPROSTONE
  30. FUROSEMIDE. [Concomitant]
     Active Substance: FUROSEMIDE
  31. MARINOL [Concomitant]
     Active Substance: DRONABINOL

REACTIONS (6)
  - Unevaluable event [Not Recovered/Not Resolved]
  - Condition aggravated [Not Recovered/Not Resolved]
  - Foot deformity [Not Recovered/Not Resolved]
  - Vasculitis [Unknown]
  - Spider vein [Unknown]
  - Onychomycosis [Recovering/Resolving]
